FAERS Safety Report 8390409 (Version 10)
Quarter: 2013Q3

REPORT INFORMATION
  Report Type: Spontaneous
  Country: US (occurrence: US)
  Receive Date: 20120203
  Receipt Date: 20130815
  Transmission Date: 20140515
  Serious: Yes (Other)
  Sender: FDA-Public Use
  Company Number: US-ASTRAZENECA-2012SE06204

PATIENT
  Age: 46 Year
  Sex: Female
  Weight: 52.2 kg

DRUGS (20)
  1. SEROQUEL [Suspect]
     Indication: BIPOLAR DISORDER
     Route: 048
  2. SEROQUEL [Suspect]
     Indication: POST-TRAUMATIC STRESS DISORDER
     Route: 048
  3. SEROQUEL [Suspect]
     Indication: BIPOLAR DISORDER
     Route: 048
  4. SEROQUEL [Suspect]
     Indication: POST-TRAUMATIC STRESS DISORDER
     Route: 048
  5. SEROQUEL [Suspect]
     Indication: BIPOLAR DISORDER
     Route: 048
  6. SEROQUEL [Suspect]
     Indication: POST-TRAUMATIC STRESS DISORDER
     Route: 048
  7. SEROQUEL [Suspect]
     Indication: BIPOLAR DISORDER
     Route: 048
  8. SEROQUEL [Suspect]
     Indication: POST-TRAUMATIC STRESS DISORDER
     Route: 048
  9. TRAZODONE [Suspect]
     Route: 065
  10. TRAMADOL [Concomitant]
     Indication: PAIN
  11. XANAX [Concomitant]
     Indication: ANXIETY
  12. XANAX [Concomitant]
     Indication: PANIC DISORDER
  13. XANAX [Concomitant]
     Indication: ANXIETY
  14. XANAX [Concomitant]
     Indication: PANIC DISORDER
  15. VICODIN [Concomitant]
     Indication: ARTHRITIS
     Dosage: 5/325 MG, QID
  16. VICODIN [Concomitant]
     Indication: HEADACHE
     Dosage: 5/325 MG, QID
  17. VICODIN [Concomitant]
     Indication: MUSCLE SPASMS
     Dosage: 5/325 MG, QID
  18. BENZTROPINE [Concomitant]
     Indication: DYSKINESIA
  19. HYDROCODONE ACETAMINOPHEN [Concomitant]
     Indication: ARTHRITIS
     Dosage: 7.5/325 MG EVERY FOUR HOURS
  20. HYDROCODONE ACETAMINOPHEN [Concomitant]
     Indication: MIGRAINE
     Dosage: 7.5/325 MG EVERY FOUR HOURS

REACTIONS (29)
  - Suicidal ideation [Unknown]
  - Dyskinesia [Unknown]
  - Bipolar disorder [Unknown]
  - Depression [Unknown]
  - Impaired self-care [Unknown]
  - Social fear [Unknown]
  - Memory impairment [Unknown]
  - Paranoia [Unknown]
  - Schizophrenia [Unknown]
  - Paraesthesia [Unknown]
  - Neurological symptom [Unknown]
  - Ear pain [Unknown]
  - Hypoaesthesia [Unknown]
  - Adverse event [Unknown]
  - Confusional state [Unknown]
  - Panic reaction [Unknown]
  - Panic attack [Unknown]
  - Mania [Unknown]
  - Nervousness [Unknown]
  - Anxiety [Unknown]
  - Deafness unilateral [Unknown]
  - Weight increased [Unknown]
  - Increased appetite [Unknown]
  - Muscle twitching [Unknown]
  - Restless legs syndrome [Unknown]
  - Muscle spasms [Unknown]
  - Therapeutic response unexpected [Unknown]
  - Drug dose omission [Unknown]
  - Therapeutic response decreased [Unknown]
